FAERS Safety Report 7797032-2 (Version None)
Quarter: 2011Q4

REPORT INFORMATION
  Report Type: 
  Country: None (occurrence: None)
  Receive Date: 20111005
  Receipt Date: 20110928
  Transmission Date: 20120403
  Serious: Yes (Life-Threatening, Hospitalization, Other)
  Sender: FDA-Public Use
  Company Number: US-AMGEN-USASP2011050100

PATIENT
  Age: 56 Year
  Sex: Male
  Weight: 136.1 kg

DRUGS (1)
  1. ENBREL [Suspect]
     Indication: PSORIASIS
     Dosage: 50 MG, QWK
     Dates: start: 20100101, end: 20110101

REACTIONS (4)
  - LOSS OF CONSCIOUSNESS [None]
  - STREPTOCOCCAL SEPSIS [None]
  - CELLULITIS [None]
  - FALL [None]
